FAERS Safety Report 8883862 (Version 1)
Quarter: 2012Q4

REPORT INFORMATION
  Report Type: 
  Country: JP (occurrence: JP)
  Receive Date: 20121102
  Receipt Date: 20121102
  Transmission Date: 20130627
  Serious: Yes (Hospitalization)
  Sender: FDA-Public Use
  Company Number: JP-WATSON-2012-17750

PATIENT
  Age: 71 Year
  Sex: Female

DRUGS (5)
  1. FENTANYL (UNKNOWN) [Suspect]
     Indication: ANAESTHESIA
     Dosage: 50 microg dose 3 single doses
     Route: 042
  2. SUGAMMADEX [Suspect]
     Indication: SURGERY
     Dosage: 150 mg, single
     Route: 042
  3. SEVOFLURANE [Concomitant]
     Indication: ANAESTHESIA
  4. PROPOFOL [Concomitant]
     Indication: ANAESTHESIA
  5. ROCURONIUM BROMIDE [Concomitant]
     Indication: ANAESTHESIA

REACTIONS (2)
  - Muscle rigidity [Recovered/Resolved]
  - Hypoventilation [Recovered/Resolved]
